FAERS Safety Report 9599188 (Version 1)
Quarter: 2013Q4

REPORT INFORMATION
  Report Type: Spontaneous
  Country: US (occurrence: US)
  Receive Date: 20131004
  Receipt Date: 20131004
  Transmission Date: 20140711
  Serious: No
  Sender: FDA-Public Use
  Company Number: US-AMGEN-USASP2013027972

PATIENT
  Age: 49 Year
  Sex: Female
  Weight: 64.85 kg

DRUGS (7)
  1. ENBREL [Suspect]
     Indication: PRODUCT USED FOR UNKNOWN INDICATION
     Dosage: 50 MG, QWK
     Route: 058
  2. CYMBALTA [Concomitant]
     Dosage: 20 MG, UNK
  3. CELEBREX [Concomitant]
     Dosage: 50 MG, UNK
  4. CLONAZEPAM [Concomitant]
     Dosage: 1 MG, UNK
  5. GABAPENTIN [Concomitant]
     Dosage: 800 MG, UNK
  6. FEXOFENADINE [Concomitant]
     Dosage: 180 MG, UNK
  7. FLOVENT [Concomitant]
     Dosage: 110 MUG, UNK

REACTIONS (1)
  - Headache [Unknown]
